FAERS Safety Report 8276345-4 (Version None)
Quarter: 2012Q2

REPORT INFORMATION
  Report Type: 
  Country: None (occurrence: None)
  Receive Date: 20120412
  Receipt Date: 20120403
  Transmission Date: 20120825
  Serious: Yes (Hospitalization, Congenital Anomaly)
  Sender: FDA-Public Use
  Company Number: US-JNJFOC-20111205145

PATIENT
  Sex: Female

DRUGS (2)
  1. TOPAMAX [Suspect]
     Indication: FOETAL EXPOSURE DURING PREGNANCY
     Route: 064
  2. QUETIAPINE [Suspect]
     Indication: FOETAL EXPOSURE DURING PREGNANCY
     Route: 064

REACTIONS (11)
  - FINGER HYPOPLASIA [None]
  - FALLOT'S TETRALOGY [None]
  - NEONATAL DISORDER [None]
  - CONGENITAL ANOMALY [None]
  - EMOTIONAL DISORDER [None]
  - HIGH ARCHED PALATE [None]
  - PATENT DUCTUS ARTERIOSUS [None]
  - SINGLE UMBILICAL ARTERY [None]
  - CONGENITAL HYDRONEPHROSIS [None]
  - FOETAL DISORDER [None]
  - ATRIAL SEPTAL DEFECT [None]
